FAERS Safety Report 23855506 (Version 3)
Quarter: 2024Q2

REPORT INFORMATION
  Report Type: Spontaneous
  Country: JP (occurrence: JP)
  Receive Date: 20240514
  Receipt Date: 20240528
  Transmission Date: 20240716
  Serious: Yes (Hospitalization, Other)
  Sender: FDA-Public Use
  Company Number: JP-MSD-M2024-17519

PATIENT
  Age: 75 Year
  Sex: Male

DRUGS (1)
  1. KEYTRUDA [Suspect]
     Active Substance: PEMBROLIZUMAB
     Indication: Non-small cell lung cancer stage IV
     Dosage: 200 MILLIGRAM, Q3W
     Route: 041
     Dates: start: 20230111, end: 20230111

REACTIONS (4)
  - Cytokine storm [Recovered/Resolved]
  - Febrile neutropenia [Unknown]
  - Malignant neoplasm progression [Unknown]
  - Inflammation [Unknown]

NARRATIVE: CASE EVENT DATE: 20230118
